FAERS Safety Report 7541798-3 (Version None)
Quarter: 2011Q2

REPORT INFORMATION
  Report Type: 
  Country: None (occurrence: None)
  Receive Date: 20110524
  Receipt Date: 20110317
  Transmission Date: 20111010
  Serious: No
  Sender: FDA-Public Use
  Company Number: 029418

PATIENT
  Age: 23 Year
  Sex: Male
  Weight: 72.6 kg

DRUGS (5)
  1. PREDNISONE [Concomitant]
  2. MICROGENICS NATURAL FISH OIL [Concomitant]
  3. CETIRIZINE HCL [Concomitant]
  4. CIMZIA [Suspect]
     Indication: CROHN'S DISEASE
     Dosage: 400 MG 1X/2 WEEKS, 1ST DOSE, 0-2-4 AND THEN 4 WEEKLY SUBCUTANEOUS
     Route: 058
     Dates: start: 20110316
  5. CALCIUM CARBONATE [Concomitant]

REACTIONS (1)
  - INFLUENZA LIKE ILLNESS [None]
